FAERS Safety Report 5922285-2 (Version None)
Quarter: 2008Q4

REPORT INFORMATION
  Report Type: 
  Country: None (occurrence: None)
  Receive Date: 20081017
  Receipt Date: 20081009
  Transmission Date: 20090506
  Serious: Yes (Other)
  Sender: FDA-Public Use
  Company Number: US-ASTRAZENECA-2008UW21906

PATIENT
  Sex: Female

DRUGS (4)
  1. SYMBICORT [Suspect]
     Indication: ASTHMA
     Route: 055
     Dates: start: 20080901
  2. SINGULAIR [Concomitant]
     Indication: ASTHMA
  3. XOPENEX [Concomitant]
     Indication: ASTHMA
  4. QVAR 40 [Concomitant]
     Indication: ASTHMA

REACTIONS (4)
  - LARYNGEAL OEDEMA [None]
  - LIP SWELLING [None]
  - SWELLING FACE [None]
  - THROAT TIGHTNESS [None]
